FAERS Safety Report 18442250 (Version 1)
Quarter: 2020Q4

REPORT INFORMATION
  Report Type: Spontaneous
  Country: US (occurrence: US)
  Receive Date: 20201029
  Receipt Date: 20201029
  Transmission Date: 20210114
  Serious: No
  Sender: FDA-Public Use
  Company Number: US-UNICHEM PHARMACEUTICALS (USA) INC-UCM202010-001145

PATIENT
  Sex: Female
  Weight: 63.5 kg

DRUGS (1)
  1. LAMOTRIGINE. [Suspect]
     Active Substance: LAMOTRIGINE
     Indication: NEUROPATHY PERIPHERAL
     Dosage: ONE TABLET IN THE MORNING AND ONE IN THE NIGHT

REACTIONS (6)
  - Musculoskeletal stiffness [Unknown]
  - Memory impairment [Unknown]
  - Fatigue [Unknown]
  - Product dose omission in error [Unknown]
  - Clumsiness [Unknown]
  - Confusional state [Unknown]
